FAERS Safety Report 6233990-5 (Version None)
Quarter: 2009Q2

REPORT INFORMATION
  Report Type: 
  Country: None (occurrence: None)
  Receive Date: 20090618
  Receipt Date: 20090609
  Transmission Date: 20091009
  Serious: Yes (Other)
  Sender: FDA-Public Use
  Company Number: AU-ASTRAZENECA-2009SE02552

PATIENT

DRUGS (1)
  1. NEXIUM [Suspect]

REACTIONS (1)
  - RENAL FAILURE ACUTE [None]
